FAERS Safety Report 4357215-0 (Version None)
Quarter: 2004Q2

REPORT INFORMATION
  Report Type: 
  Country: None (occurrence: None)
  Receive Date: 20040507
  Receipt Date: 20040415
  Transmission Date: 20050107
  Serious: Yes (Hospitalization, Other)
  Sender: FDA-Public Use
  Company Number: USA040465132

PATIENT
  Age: 81 Year
  Sex: Female
  Weight: 70 kg

DRUGS (9)
  1. FORTEO [Suspect]
     Indication: OSTEOPOROSIS
     Dosage: 20 UG/1 DAY
     Dates: start: 20030401
  2. AMARYL [Concomitant]
  3. BLOOD PRESSURE MEDICATION [Concomitant]
  4. LIPITOR [Concomitant]
  5. PRAVACHOL [Concomitant]
  6. ZETIA [Concomitant]
  7. IRON [Concomitant]
  8. ATENOLOL [Concomitant]
  9. AVANDIA [Concomitant]

REACTIONS (10)
  - ARTHRALGIA [None]
  - BALANCE DISORDER [None]
  - FALL [None]
  - FEELING ABNORMAL [None]
  - JOINT SWELLING [None]
  - MALAISE [None]
  - PAIN IN EXTREMITY [None]
  - PHARMACEUTICAL PRODUCT COMPLAINT [None]
  - SCIATIC NERVE INJURY [None]
  - SPINAL COLUMN STENOSIS [None]
